FAERS Safety Report 5922989-1 (Version None)
Quarter: 2008Q4

REPORT INFORMATION
  Report Type: 
  Country: None (occurrence: None)
  Receive Date: 20081018
  Receipt Date: 20081008
  Transmission Date: 20090506
  Serious: Yes (Other)
  Sender: FDA-Public Use
  Company Number: US-PFIZER INC-2008043671

PATIENT
  Sex: Female

DRUGS (1)
  1. BEXTRA [Suspect]
     Indication: ARTHRITIS
     Dates: start: 20031118

REACTIONS (7)
  - AMNESIA [None]
  - CEREBROVASCULAR ACCIDENT [None]
  - DEPRESSION [None]
  - OBSESSIVE-COMPULSIVE DISORDER [None]
  - PSORIASIS [None]
  - STEVENS-JOHNSON SYNDROME [None]
  - VERTIGO [None]
